FAERS Safety Report 22989631 (Version 2)
Quarter: 2023Q4

REPORT INFORMATION
  Report Type: Spontaneous
  Country: SE (occurrence: SE)
  Receive Date: 20230927
  Receipt Date: 20231026
  Transmission Date: 20240110
  Serious: Yes (Hospitalization, Other)
  Sender: FDA-Public Use
  Company Number: SE-BIOVITRUM-2023-SE-015207

PATIENT

DRUGS (1)
  1. KINERET [Suspect]
     Active Substance: ANAKINRA
     Indication: Kawasaki^s disease
     Dosage: DAILY

REACTIONS (2)
  - Stevens-Johnson syndrome [Recovering/Resolving]
  - Off label use [Unknown]
